FAERS Safety Report 13734098 (Version 1)
Quarter: 2017Q3

REPORT INFORMATION
  Report Type: Spontaneous
  Country: FR (occurrence: FR)
  Receive Date: 20170708
  Receipt Date: 20170708
  Transmission Date: 20171127
  Serious: Yes (Other)
  Sender: FDA-Public Use
  Company Number: FR-ACTELION-A-CH2017-156059

PATIENT
  Age: 39 Year
  Sex: Female

DRUGS (1)
  1. VELETRI [Suspect]
     Active Substance: EPOPROSTENOL
     Indication: PULMONARY ARTERIAL HYPERTENSION
     Route: 042

REACTIONS (4)
  - Pulmonary arterial hypertension [Unknown]
  - Condition aggravated [Unknown]
  - Lung transplant [Unknown]
  - Complications of transplanted lung [Unknown]
